FAERS Safety Report 4472731-9 (Version None)
Quarter: 2004Q4

REPORT INFORMATION
  Report Type: 
  Country: None (occurrence: None)
  Receive Date: 20041013
  Receipt Date: 20041004
  Transmission Date: 20050328
  Serious: Yes (Other)
  Sender: FDA-Public Use
  Company Number: JP-JNJFOC-20040105462

PATIENT
  Age: 26 Year
  Sex: Female

DRUGS (8)
  1. LEVOFLOXACIN [Suspect]
     Indication: SINUSITIS
     Route: 049
  2. ORAL CONTRACEPTIVE [Concomitant]
     Route: 049
  3. FLUTICASONE PROPIONATE [Concomitant]
     Indication: RHINITIS
     Route: 055
     Dates: start: 20031101, end: 20031101
  4. PARACETAMOL [Concomitant]
     Indication: PAIN
     Route: 049
     Dates: start: 20031101, end: 20031101
  5. NORTUSSINE [Concomitant]
     Route: 049
     Dates: start: 20031101, end: 20031101
  6. NORTUSSINE [Concomitant]
     Route: 049
     Dates: start: 20031101, end: 20031101
  7. NORTUSSINE [Concomitant]
     Route: 049
     Dates: start: 20031101, end: 20031101
  8. NORTUSSINE [Concomitant]
     Indication: COUGH
     Route: 049
     Dates: start: 20031101, end: 20031101

REACTIONS (3)
  - DRUG EXPOSURE DURING PREGNANCY [None]
  - NAUSEA [None]
  - PREGNANCY ON ORAL CONTRACEPTIVE [None]
